FAERS Safety Report 11735118 (Version 1)
Quarter: 2015Q4

REPORT INFORMATION
  Report Type: Spontaneous
  Country: US (occurrence: US)
  Receive Date: 20151113
  Receipt Date: 20151113
  Transmission Date: 20160304
  Serious: No
  Sender: FDA-Public Use
  Company Number: US-GUERBET LLC-1044165

PATIENT
  Age: 75 Year
  Sex: Female
  Weight: 78.5 kg

DRUGS (3)
  1. NALBUPHINE HYDROCHLORIDE. [Concomitant]
     Active Substance: NALBUPHINE HYDROCHLORIDE
     Dates: start: 20071012, end: 20071012
  2. VERSED [Concomitant]
     Active Substance: MIDAZOLAM HYDROCHLORIDE
     Dates: start: 20071012, end: 20071012
  3. OXILAN [Suspect]
     Active Substance: IOXILAN
     Indication: CATHETERISATION VENOUS
     Dates: start: 20071012, end: 20071012

REACTIONS (3)
  - Vomiting [Recovered/Resolved]
  - Cough [Recovered/Resolved]
  - Nausea [Recovered/Resolved]

NARRATIVE: CASE EVENT DATE: 20071012
